FAERS Safety Report 6982300-4 (Version None)
Quarter: 2010Q3

REPORT INFORMATION
  Report Type: 
  Country: None (occurrence: None)
  Receive Date: 20100914
  Receipt Date: 20091229
  Transmission Date: 20110219
  Serious: No
  Sender: FDA-Public Use
  Company Number: US-PFIZER INC-2010000274

PATIENT
  Sex: Female
  Weight: 47.619 kg

DRUGS (1)
  1. LYRICA [Suspect]
     Indication: VULVOVAGINAL PAIN
     Dosage: 50 MG, 2X/DAY
     Dates: start: 20090101

REACTIONS (4)
  - BREAKTHROUGH PAIN [None]
  - DRUG INEFFECTIVE [None]
  - FLUID RETENTION [None]
  - WEIGHT INCREASED [None]
